FAERS Safety Report 11625811 (Version 1)
Quarter: 2015Q4

REPORT INFORMATION
  Report Type: Spontaneous
  Country: US (occurrence: US)
  Receive Date: 20151013
  Receipt Date: 20151013
  Transmission Date: 20160304
  Serious: Yes (Other)
  Sender: FDA-Public Use
  Company Number: US-AMGEN-USASP2015086957

PATIENT
  Age: 49 Year
  Sex: Female

DRUGS (2)
  1. NEUPOGEN [Suspect]
     Active Substance: FILGRASTIM
     Indication: PRODUCT USED FOR UNKNOWN INDICATION
     Dosage: 300 MCG, UNK
     Route: 065
  2. NEULASTA [Suspect]
     Active Substance: PEGFILGRASTIM
     Indication: PRODUCT USED FOR UNKNOWN INDICATION
     Dosage: UNK UNK, UNK
     Route: 065

REACTIONS (9)
  - Headache [Not Recovered/Not Resolved]
  - Neoplasm malignant [Unknown]
  - Mobility decreased [Unknown]
  - Feeling abnormal [Unknown]
  - Fatigue [Unknown]
  - Neck pain [Not Recovered/Not Resolved]
  - Malaise [Unknown]
  - Flank pain [Unknown]
  - Back pain [Not Recovered/Not Resolved]
